FAERS Safety Report 11329551 (Version 1)
Quarter: 2015Q3

REPORT INFORMATION
  Report Type: Spontaneous
  Country: IT (occurrence: IT)
  Receive Date: 20150803
  Receipt Date: 20150803
  Transmission Date: 20151125
  Serious: Yes (Hospitalization, Other)
  Sender: FDA-Public Use
  Company Number: IT-ALKEM-001105

PATIENT
  Age: 38 Year
  Sex: Female
  Weight: 65 kg

DRUGS (3)
  1. LAMOTRIGINE. [Suspect]
     Active Substance: LAMOTRIGINE
     Indication: PRODUCT USED FOR UNKNOWN INDICATION
  2. ALPRAZOLAM. [Concomitant]
     Active Substance: ALPRAZOLAM
     Indication: DECREASED APPETITE
  3. PAROXETINE [Concomitant]
     Active Substance: PAROXETINE\PAROXETINE HYDROCHLORIDE
     Indication: DECREASED APPETITE

REACTIONS (8)
  - Drug reaction with eosinophilia and systemic symptoms [Unknown]
  - Respiratory failure [Unknown]
  - Acute hepatic failure [Unknown]
  - Coma [Unknown]
  - Acute kidney injury [Unknown]
  - Stupor [Unknown]
  - Insomnia [Unknown]
  - Somnolence [Unknown]
